FAERS Safety Report 19092253 (Version 3)
Quarter: 2021Q3

REPORT INFORMATION
  Report Type: Report from Study
  Country: BR (occurrence: BR)
  Receive Date: 20210405
  Receipt Date: 20210809
  Transmission Date: 20211014
  Serious: Yes (Other)
  Sender: FDA-Public Use
  Company Number: PHHY2019BR097926

PATIENT
  Age: 42 Year
  Sex: Female

DRUGS (11)
  1. COSENTYX [Suspect]
     Active Substance: SECUKINUMAB
     Indication: ANKYLOSING SPONDYLITIS
     Dosage: 150 MG, UNKNOWN
     Route: 065
     Dates: start: 20190323
  2. COSENTYX [Suspect]
     Active Substance: SECUKINUMAB
     Dosage: UNK
     Route: 065
     Dates: start: 20200320
  3. MELOXICAM. [Concomitant]
     Active Substance: MELOXICAM
     Dosage: 5 MG, UNKNOWN
     Route: 065
  4. CLONAZEPAMUM [Concomitant]
     Indication: PRODUCT USED FOR UNKNOWN INDICATION
     Dosage: 15 MG, UNKNOWN
     Route: 065
  5. FAMOTIDINE. [Concomitant]
     Active Substance: FAMOTIDINE
     Indication: PRODUCT USED FOR UNKNOWN INDICATION
     Dosage: 40 MG, UNKNOWN
     Route: 065
  6. TRAMADOL. [Concomitant]
     Active Substance: TRAMADOL
     Indication: PRODUCT USED FOR UNKNOWN INDICATION
     Dosage: 36 MG, UNKNOWN
     Route: 065
  7. COSENTYX [Suspect]
     Active Substance: SECUKINUMAB
     Dosage: UNK
     Route: 065
     Dates: start: 20200824
  8. NORTRIPTYLINE [Concomitant]
     Active Substance: NORTRIPTYLINE
     Indication: PRODUCT USED FOR UNKNOWN INDICATION
     Dosage: 20 MG, UNKNOWN
     Route: 065
  9. MELOXICAM. [Concomitant]
     Active Substance: MELOXICAM
     Indication: PRODUCT USED FOR UNKNOWN INDICATION
     Dosage: 7 MG, UNKNOWN
     Route: 065
  10. COSENTYX [Suspect]
     Active Substance: SECUKINUMAB
     Dosage: UNK
     Route: 065
     Dates: start: 20200324
  11. PREGABALIN. [Concomitant]
     Active Substance: PREGABALIN
     Indication: PRODUCT USED FOR UNKNOWN INDICATION
     Dosage: 75 MG, UNKNOWN
     Route: 065

REACTIONS (41)
  - Hyperhidrosis [Unknown]
  - Feeling abnormal [Unknown]
  - Heart rate increased [Not Recovered/Not Resolved]
  - Inappropriate schedule of product administration [Unknown]
  - Vision blurred [Not Recovered/Not Resolved]
  - Ankylosing spondylitis [Unknown]
  - Neck pain [Not Recovered/Not Resolved]
  - Pain [Not Recovered/Not Resolved]
  - Night blindness [Not Recovered/Not Resolved]
  - Mass [Unknown]
  - Influenza [Unknown]
  - Dysgraphia [Not Recovered/Not Resolved]
  - Burning sensation [Not Recovered/Not Resolved]
  - Malaise [Unknown]
  - Insomnia [Not Recovered/Not Resolved]
  - Skin disorder [Not Recovered/Not Resolved]
  - Arthralgia [Not Recovered/Not Resolved]
  - Pain in extremity [Not Recovered/Not Resolved]
  - Visual impairment [Not Recovered/Not Resolved]
  - Skin discolouration [Unknown]
  - Hypoaesthesia [Not Recovered/Not Resolved]
  - Spinal cord compression [Not Recovered/Not Resolved]
  - Memory impairment [Not Recovered/Not Resolved]
  - Neuralgia [Unknown]
  - Sexual dysfunction [Unknown]
  - Spinal pain [Not Recovered/Not Resolved]
  - Influenza [Recovered/Resolved]
  - Uveitis [Unknown]
  - Spinal disorder [Recovered/Resolved]
  - Emotional disorder [Unknown]
  - Concomitant disease aggravated [Not Recovered/Not Resolved]
  - Orthostatic hypotension [Unknown]
  - Malaise [Recovered/Resolved]
  - Finger deformity [Unknown]
  - Anxiety [Unknown]
  - Joint stiffness [Unknown]
  - Musculoskeletal stiffness [Not Recovered/Not Resolved]
  - Osteitis [Not Recovered/Not Resolved]
  - Bone disorder [Unknown]
  - Back disorder [Unknown]
  - Drug ineffective [Not Recovered/Not Resolved]

NARRATIVE: CASE EVENT DATE: 20190423
